FAERS Safety Report 6784954-4 (Version None)
Quarter: 2010Q2

REPORT INFORMATION
  Report Type: 
  Country: None (occurrence: None)
  Receive Date: 20100622
  Receipt Date: 20100615
  Transmission Date: 20101027
  Serious: Yes (Hospitalization)
  Sender: FDA-Public Use
  Company Number: FR-GILEAD-2010-0029852

PATIENT
  Age: 40 Year
  Sex: Male

DRUGS (3)
  1. ATRIPLA [Suspect]
     Indication: HIV INFECTION
     Dates: start: 20100531, end: 20100607
  2. SPORANOX [Concomitant]
     Dates: start: 20100301
  3. BACTRIM [Concomitant]
     Dates: start: 20100301

REACTIONS (8)
  - BLOOD CREATININE INCREASED [None]
  - BLOOD UREA ABNORMAL [None]
  - CREATININE RENAL CLEARANCE ABNORMAL [None]
  - DEHYDRATION [None]
  - DIABETES MELLITUS [None]
  - DIARRHOEA [None]
  - HAEMOGLOBIN DECREASED [None]
  - HYPERPROTEINAEMIA [None]
